FAERS Safety Report 4435751-6 (Version None)
Quarter: 2004Q3

REPORT INFORMATION
  Report Type: 
  Country: None (occurrence: None)
  Receive Date: 20040826
  Receipt Date: 20040813
  Transmission Date: 20050211
  Serious: Yes (Other)
  Sender: FDA-Public Use
  Company Number: 2004056095

PATIENT
  Sex: Female
  Weight: 72.1219 kg

DRUGS (4)
  1. NEURONTIN [Suspect]
     Indication: HYPOAESTHESIA
     Dosage: 900 MG (300 MG, 3 IN 1 D), UNKNOWN
     Dates: start: 20030101, end: 20040101
  2. NEURONTIN [Suspect]
     Indication: PAIN
     Dosage: 900 MG (300 MG, 3 IN 1 D), UNKNOWN
     Dates: start: 20030101, end: 20040101
  3. HYDROCHLOROTHIAZIDE [Concomitant]
  4. POTASSIUM (POTASSIUM) [Concomitant]

REACTIONS (5)
  - DRUG INEFFECTIVE [None]
  - INSOMNIA [None]
  - NAUSEA [None]
  - NIGHTMARE [None]
  - POST PROCEDURAL COMPLICATION [None]
